FAERS Safety Report 6916021-0 (Version None)
Quarter: 2010Q3

REPORT INFORMATION
  Report Type: 
  Country: None (occurrence: None)
  Receive Date: 20100810
  Receipt Date: 20100730
  Transmission Date: 20110219
  Serious: Yes (Hospitalization)
  Sender: FDA-Public Use
  Company Number: US-BIOGENIDEC-2010BI014043

PATIENT
  Age: 50 Year
  Sex: Male

DRUGS (1)
  1. TYSABRI [Suspect]
     Indication: MULTIPLE SCLEROSIS
     Route: 042
     Dates: start: 20100328, end: 20100328

REACTIONS (8)
  - ABASIA [None]
  - HEMIPARESIS [None]
  - HYPERSENSITIVITY [None]
  - INTERVERTEBRAL DISC OPERATION [None]
  - MOBILITY DECREASED [None]
  - TREMOR [None]
  - VIITH NERVE PARALYSIS [None]
  - VISUAL ACUITY REDUCED [None]
